FAERS Safety Report 5896014-5 (Version None)
Quarter: 2008Q3

REPORT INFORMATION
  Report Type: 
  Country: None (occurrence: None)
  Receive Date: 20080924
  Receipt Date: 20080915
  Transmission Date: 20090109
  Serious: Yes (Other)
  Sender: FDA-Public Use
  Company Number: IT-SANOFI-SYNTHELABO-A06200800552

PATIENT
  Age: 39 Year
  Sex: Female

DRUGS (3)
  1. METHYLPREDNISOLONE [Concomitant]
     Indication: CUTANEOUS LUPUS ERYTHEMATOSUS
     Route: 042
  2. SOMATOSTATIN [Concomitant]
     Indication: CUTANEOUS LUPUS ERYTHEMATOSUS
     Route: 042
  3. HYDROXYCHLOROQUINE [Suspect]
     Indication: CUTANEOUS LUPUS ERYTHEMATOSUS
     Route: 048

REACTIONS (1)
  - PANCREATITIS [None]
